FAERS Safety Report 9696195 (Version 1)
Quarter: 2013Q4

REPORT INFORMATION
  Report Type: Spontaneous
  Country: BR (occurrence: BR)
  Receive Date: 20131119
  Receipt Date: 20131119
  Transmission Date: 20140711
  Serious: Yes (Hospitalization, Other)
  Sender: FDA-Public Use
  Company Number: PHHY2013BR131668

PATIENT
  Sex: Male
  Weight: 82 kg

DRUGS (6)
  1. EXELON [Suspect]
     Indication: DEMENTIA ALZHEIMER^S TYPE
     Dosage: 1.5 MG, TID
     Route: 048
  2. EXELON [Suspect]
     Dosage: 3 MG, TID
     Route: 048
     Dates: end: 20131114
  3. AAS [Concomitant]
     Indication: ANTICOAGULANT THERAPY
     Dosage: 02 DF, DAILY
     Route: 048
  4. KARVIL [Concomitant]
     Indication: CARDIAC DISORDER
     Dosage: 02 DF, DAILY (STARTED WITH 25 MG BUT ACTUALLY USE 6.25 MG)
     Route: 048
  5. ROSUVASTATIN [Concomitant]
     Indication: BLOOD CHOLESTEROL ABNORMAL
     Dosage: 1 DF, QHS
     Route: 048
  6. ATORVASTATIN [Concomitant]
     Indication: BLOOD CHOLESTEROL ABNORMAL
     Dosage: 1 DF, QHS
     Route: 048

REACTIONS (1)
  - Pneumonia [Recovered/Resolved]
